FAERS Safety Report 22963734 (Version 6)
Quarter: 2024Q2

REPORT INFORMATION
  Report Type: Spontaneous
  Country: US (occurrence: US)
  Receive Date: 20230921
  Receipt Date: 20240409
  Transmission Date: 20240716
  Serious: Yes (Other)
  Sender: FDA-Public Use
  Company Number: US-BRISTOL-MYERS SQUIBB COMPANY-2023-132572

PATIENT
  Age: 73 Year
  Sex: Female

DRUGS (3)
  1. LENALIDOMIDE [Suspect]
     Active Substance: LENALIDOMIDE
     Indication: Diffuse large B-cell lymphoma
     Dosage: FREQUENCY- TAKE 1 CAPSULE BY MOUTH WHOLE WITH WATER, WITH OR W/O FOOD, AT SAME TIME DAILY FOR 3 WEEK
     Route: 048
     Dates: start: 20221111
  2. LENALIDOMIDE [Suspect]
     Active Substance: LENALIDOMIDE
     Dosage: FREQUENCY- TAKE 1 CAPSULE BY MOUTH WHOLE WITH WATER, WITH OR W/O FOOD, AT SAME TIME DAILY FOR 3 WEEK
     Route: 048
     Dates: start: 20230605
  3. LENALIDOMIDE [Suspect]
     Active Substance: LENALIDOMIDE
     Dosage: FREQUENCY- TAKE 1 CAPSULE BY MOUTH WHOLE WITH WATER, WITH OR W/O FOOD, AT SAME TIME DAILY FOR 3 WEEK
     Route: 048
     Dates: start: 20230605

REACTIONS (7)
  - Pain [Recovered/Resolved]
  - Nausea [Not Recovered/Not Resolved]
  - Malaise [Unknown]
  - Off label use [Unknown]
  - Abdominal pain [Recovered/Resolved]
  - Product dose omission in error [Unknown]
  - Influenza [Recovering/Resolving]
